FAERS Safety Report 16038912 (Version 2)
Quarter: 2019Q4

REPORT INFORMATION
  Report Type: Report from Study
  Country: None (occurrence: US)
  Receive Date: 20190306
  Receipt Date: 20191219
  Transmission Date: 20200122
  Serious: Yes (Hospitalization, Other)
  Sender: FDA-Public Use
  Company Number: US-ABBVIE-19K-163-2646437-00

PATIENT
  Age: 62 Year
  Sex: Female

DRUGS (2)
  1. HUMIRA [Suspect]
     Active Substance: ADALIMUMAB
     Indication: PSORIATIC ARTHROPATHY
     Route: 058
     Dates: start: 20181203, end: 20181231
  2. HUMIRA [Suspect]
     Active Substance: ADALIMUMAB
     Route: 058
     Dates: start: 20190215, end: 20190220

REACTIONS (11)
  - Arthralgia [Unknown]
  - Palpitations [Unknown]
  - Arthralgia [Recovered/Resolved]
  - Enteritis [Unknown]
  - Malaise [Unknown]
  - Nausea [Unknown]
  - Vomiting [Recovered/Resolved]
  - Anaemia [Unknown]
  - Arthralgia [Not Recovered/Not Resolved]
  - Rhinorrhoea [Unknown]
  - Joint stiffness [Unknown]

NARRATIVE: CASE EVENT DATE: 20181203
